FAERS Safety Report 8066139-7 (Version None)
Quarter: 2012Q1

REPORT INFORMATION
  Report Type: 
  Country: None (occurrence: None)
  Receive Date: 20120124
  Receipt Date: 20120117
  Transmission Date: 20120608
  Serious: Yes (Other)
  Sender: FDA-Public Use
  Company Number: US-BAYER-2011-104159

PATIENT
  Age: 59 Year
  Sex: Male

DRUGS (19)
  1. OPTIMARK [Suspect]
  2. INSULIN [Concomitant]
  3. LASIX [Concomitant]
  4. EPOGEN [Concomitant]
  5. GADOLINIUM IN UNSPECIFIED DRUG [Suspect]
     Indication: ANGIOGRAM
     Dosage: UNK
     Dates: start: 20030717, end: 20030717
  6. VERAPAMIL [Concomitant]
  7. CALCITRIOL [Concomitant]
  8. LANOXIN [Concomitant]
  9. RENAGEL [Concomitant]
  10. COUMADIN [Concomitant]
     Indication: ATRIAL FIBRILLATION
  11. SENSIPAR [Concomitant]
  12. OMNISCAN [Suspect]
  13. ALBUTEROL [Concomitant]
  14. GADOLINIUM IN UNSPECIFIED DRUG [Suspect]
     Dosage: UNK
     Dates: start: 20031024, end: 20031024
  15. GLYBURIDE [Concomitant]
  16. MINOXIDIL [Concomitant]
  17. MAGNEVIST [Suspect]
  18. CLONIDINE [Concomitant]
  19. FLOVENT [Concomitant]

REACTIONS (1)
  - NEPHROGENIC SYSTEMIC FIBROSIS [None]
